FAERS Safety Report 9137792 (Version 1)
Quarter: 2013Q1

REPORT INFORMATION
  Report Type: Report from Study
  Country: US (occurrence: US)
  Receive Date: 20130304
  Receipt Date: 20130304
  Transmission Date: 20140127
  Serious: No
  Sender: FDA-Public Use
  Company Number: US-ABBOTT-13P-163-1037677-00

PATIENT
  Sex: Male
  Weight: 106.69 kg

DRUGS (9)
  1. ANDROGEL [Suspect]
     Indication: BLOOD TESTOSTERONE DECREASED
     Dosage: ONE PACKET DAILY
     Dates: start: 2011, end: 2012
  2. ANDROGEL [Suspect]
     Indication: PRODUCT USED FOR UNKNOWN INDICATION
     Dosage: 2 PUMPS DAILY
     Dates: start: 201212, end: 201212
  3. ANDROGEL [Suspect]
     Dosage: 3 PUMPS DAILY
     Dates: start: 201212, end: 201301
  4. LEVOTHYROXINE [Concomitant]
     Indication: HYPOTHYROIDISM
  5. BYSOLIC [Concomitant]
     Indication: HYPERTENSION
  6. SIMVASTATIN [Concomitant]
     Indication: HYPERLIPIDAEMIA
  7. XANAX [Concomitant]
     Indication: ANXIETY
  8. CELEXA [Concomitant]
     Indication: DEPRESSION
  9. RAPAFLO [Concomitant]
     Indication: PROSTATIC DISORDER

REACTIONS (5)
  - Depressed mood [Not Recovered/Not Resolved]
  - Drug ineffective [Recovered/Resolved]
  - Asthenia [Not Recovered/Not Resolved]
  - Libido decreased [Not Recovered/Not Resolved]
  - Arthritis [Not Recovered/Not Resolved]
